FAERS Safety Report 6279727-5 (Version None)
Quarter: 2009Q3

REPORT INFORMATION
  Report Type: 
  Country: None (occurrence: None)
  Receive Date: 20090721
  Receipt Date: 20090708
  Transmission Date: 20100115
  Serious: Yes (Other)
  Sender: FDA-Public Use
  Company Number: B0584266A

PATIENT
  Age: 33 Year
  Sex: Male

DRUGS (4)
  1. EPZICOM [Suspect]
     Indication: HIV INFECTION
  2. SAQUINAVIR + RITONAVIR (FORMULATION UNKNOWN) (SAQUINAVIR + RITONAVIR) [Suspect]
     Indication: HIV INFECTION
  3. TRIZIVIR [Concomitant]
  4. NEVIRAPINE [Concomitant]

REACTIONS (5)
  - CENTRAL NERVOUS SYSTEM LESION [None]
  - DRUG INEFFECTIVE [None]
  - HIV INFECTION [None]
  - MUSCULAR WEAKNESS [None]
  - PLEOCYTOSIS [None]
